FAERS Safety Report 9473163 (Version 2)
Quarter: 2013Q3

REPORT INFORMATION
  Report Type: Spontaneous
  Country: US (occurrence: US)
  Receive Date: 20130823
  Receipt Date: 20130823
  Transmission Date: 20140515
  Serious: Yes (Other)
  Sender: FDA-Public Use
  Company Number: US-BRISTOL-MYERS SQUIBB COMPANY-18708446

PATIENT
  Age: 40 Year
  Sex: Female
  Weight: 77.1 kg

DRUGS (9)
  1. SPRYCEL [Suspect]
     Indication: CHRONIC MYELOID LEUKAEMIA
     Dosage: 1DF:100-140MG.
     Route: 048
     Dates: start: 201208, end: 201212
  2. LOESTRIN [Concomitant]
  3. ACYCLOVIR [Concomitant]
  4. LEVOTHYROXIN [Concomitant]
  5. LIOTHYRONINE [Concomitant]
  6. MAGNESIUM OXIDE [Concomitant]
  7. MULTIVITAMIN [Concomitant]
  8. KAPIDEX [Concomitant]
  9. DEXLANSOPRAZOLE [Concomitant]

REACTIONS (3)
  - Malignant neoplasm progression [Unknown]
  - Fatigue [Not Recovered/Not Resolved]
  - Arthralgia [Not Recovered/Not Resolved]
